FAERS Safety Report 22083225 (Version 1)
Quarter: 2023Q1

REPORT INFORMATION
  Report Type: Spontaneous
  Country: BR (occurrence: None)
  Receive Date: 20230310
  Receipt Date: 20230310
  Transmission Date: 20230418
  Serious: Yes (Other)
  Sender: FDA-Public Use
  Company Number: 2023A057142

PATIENT
  Age: 6 Year
  Sex: Male

DRUGS (1)
  1. SYMBICORT [Suspect]
     Active Substance: BUDESONIDE\FORMOTEROL FUMARATE DIHYDRATE
     Dosage: A JET IN THE MORNING AND A JET AT NIGHT
     Route: 055

REACTIONS (3)
  - Asthmatic crisis [Unknown]
  - Medication error [Unknown]
  - Off label use [Not Recovered/Not Resolved]
